FAERS Safety Report 4905396-X (Version None)
Quarter: 2006Q1

REPORT INFORMATION
  Report Type: 
  Country: None (occurrence: None)
  Receive Date: 20060207
  Receipt Date: 20060207
  Transmission Date: 20060701
  Serious: Yes (Disabling)
  Sender: FDA-Public Use
  Company Number: None

PATIENT
  Age: 62 Year
  Sex: Male
  Weight: 99 kg

DRUGS (1)
  1. MELOXICAM [Suspect]
     Indication: PAIN
     Dosage: 7.5 MG DAILY PO
     Route: 048
     Dates: start: 20050503, end: 20050711

REACTIONS (2)
  - INSOMNIA [None]
  - WEIGHT INCREASED [None]
